FAERS Safety Report 24438783 (Version 9)
Quarter: 2025Q1

REPORT INFORMATION
  Report Type: Report from Study
  Country: CA (occurrence: CA)
  Receive Date: 20241015
  Receipt Date: 20250327
  Transmission Date: 20250408
  Serious: Yes (Hospitalization, Other)
  Sender: JOHNSON AND JOHNSON
  Company Number: CA-JNJFOC-20240561886

PATIENT
  Age: 8 Year
  Sex: Male
  Weight: 30 kg

DRUGS (5)
  1. REMICADE [Suspect]
     Active Substance: INFLIXIMAB
     Indication: Crohn^s disease
     Route: 041
     Dates: start: 20230427
  2. REMICADE [Suspect]
     Active Substance: INFLIXIMAB
     Route: 041
  3. REMICADE [Suspect]
     Active Substance: INFLIXIMAB
     Route: 041
  4. REMICADE [Suspect]
     Active Substance: INFLIXIMAB
     Route: 041
  5. REMICADE [Suspect]
     Active Substance: INFLIXIMAB
     Dosage: AT WEEKS 0,2,6 THEN EVERY 6 WEEKS
     Route: 041

REACTIONS (9)
  - Lymphadenectomy [Recovered/Resolved]
  - Nocardiosis [Recovered/Resolved]
  - Pharyngitis streptococcal [Recovered/Resolved]
  - Drug specific antibody [Unknown]
  - Infusion related reaction [Recovered/Resolved]
  - Weight increased [Recovered/Resolved]
  - Drug level decreased [Unknown]
  - Viral infection [Recovered/Resolved]
  - Off label use [Unknown]

NARRATIVE: CASE EVENT DATE: 20240101
